FAERS Safety Report 5496190-2 (Version None)
Quarter: 2007Q4

REPORT INFORMATION
  Report Type: 
  Country: None (occurrence: None)
  Receive Date: 20071025
  Receipt Date: 20071019
  Transmission Date: 20080405
  Serious: Yes (Life-Threatening, Hospitalization)
  Sender: FDA-Public Use
  Company Number: JP-BRISTOL-MYERS SQUIBB COMPANY-13940036

PATIENT
  Age: 74 Year
  Sex: Female

DRUGS (1)
  1. VEPESID [Suspect]
     Indication: OVARIAN CANCER
     Route: 048
     Dates: start: 20060904, end: 20070223

REACTIONS (2)
  - ACUTE RESPIRATORY DISTRESS SYNDROME [None]
  - INTERSTITIAL LUNG DISEASE [None]
